FAERS Safety Report 4535896-6 (Version None)
Quarter: 2004Q4

REPORT INFORMATION
  Report Type: 
  Country: None (occurrence: None)
  Receive Date: 20041223
  Receipt Date: 20041203
  Transmission Date: 20050328
  Serious: Yes (Other)
  Sender: FDA-Public Use
  Company Number: PHBS2004CA16695

PATIENT
  Sex: Female

DRUGS (1)
  1. ESTRADOT [Suspect]
     Dosage: 100 UG/DAY
     Route: 062

REACTIONS (11)
  - BLOOD PRESSURE INCREASED [None]
  - DIABETES MELLITUS [None]
  - DRUG INEFFECTIVE [None]
  - DYSPNOEA [None]
  - FEELING ABNORMAL [None]
  - HOT FLUSH [None]
  - INSOMNIA [None]
  - NIGHT SWEATS [None]
  - OEDEMA PERIPHERAL [None]
  - PYREXIA [None]
  - VEIN DISORDER [None]
